APPROVED DRUG PRODUCT: ISORDIL
Active Ingredient: ISOSORBIDE DINITRATE
Strength: 40MG
Dosage Form/Route: TABLET;ORAL
Application: N012093 | Product #001 | TE Code: AB
Applicant: BAUSCH HEALTH US LLC
Approved: Jul 29, 1988 | RLD: Yes | RS: Yes | Type: RX